FAERS Safety Report 24234371 (Version 1)
Quarter: 2024Q3

REPORT INFORMATION
  Report Type: Spontaneous
  Country: US (occurrence: US)
  Receive Date: 20240821
  Receipt Date: 20240821
  Transmission Date: 20241016
  Serious: No
  Sender: SANDOZ
  Company Number: US-SANDOZ-SDZ2024US074156

PATIENT
  Sex: Female

DRUGS (1)
  1. RECLAST [Suspect]
     Active Substance: ZOLEDRONIC ACID
     Indication: Product used for unknown indication
     Dosage: UNK
     Route: 065
     Dates: start: 202404

REACTIONS (6)
  - Spinal pain [Unknown]
  - Muscle tightness [Unknown]
  - Alopecia [Unknown]
  - Musculoskeletal stiffness [Unknown]
  - Bone pain [Unknown]
  - Insomnia [Unknown]
